FAERS Safety Report 5080891-4 (Version None)
Quarter: 2006Q3

REPORT INFORMATION
  Report Type: 
  Country: None (occurrence: None)
  Receive Date: 20060810
  Receipt Date: 20060803
  Transmission Date: 20061208
  Serious: Yes (Life-Threatening, Hospitalization, Disabling)
  Sender: FDA-Public Use
  Company Number: FABR-11591

PATIENT
  Age: 58 Year
  Sex: Male
  Weight: 66 kg

DRUGS (1)
  1. FABRAZYME [Suspect]
     Indication: FABRY'S DISEASE
     Dosage: 70 MG Q2WKS IV
     Route: 042
     Dates: start: 20040720

REACTIONS (5)
  - ALCOHOL USE [None]
  - ATRIOVENTRICULAR BLOCK [None]
  - DISEASE PROGRESSION [None]
  - FABRY'S DISEASE [None]
  - SYNCOPE [None]
